FAERS Safety Report 11512561 (Version 1)
Quarter: 2015Q3

REPORT INFORMATION
  Report Type: Spontaneous
  Country: SK (occurrence: SK)
  Receive Date: 20150916
  Receipt Date: 20150916
  Transmission Date: 20151125
  Serious: Yes (Death, Hospitalization, Other)
  Sender: FDA-Public Use
  Company Number: SK-VIIV HEALTHCARE LIMITED-SK2015GSK130740

PATIENT
  Age: 33 Year
  Sex: Male

DRUGS (2)
  1. DARUNAVIR PLUS RITONAVIR [Suspect]
     Active Substance: DARUNAVIR\RITONAVIR
     Indication: HIV INFECTION
     Dosage: UNK
     Dates: start: 201501
  2. ABACAVIR SULFATE + LAMIVUDINE [Suspect]
     Active Substance: ABACAVIR SULFATE\LAMIVUDINE
     Indication: HIV INFECTION
     Dosage: UNK
     Dates: start: 201501

REACTIONS (13)
  - Abdominal pain [Unknown]
  - Cachexia [Unknown]
  - Mental disorder [Recovered/Resolved]
  - Hypotension [Unknown]
  - Apathy [Unknown]
  - Electrolyte imbalance [Unknown]
  - Condition aggravated [Fatal]
  - Dyspepsia [Unknown]
  - Hypocoagulable state [Unknown]
  - Pancytopenia [Unknown]
  - Pyrexia [Unknown]
  - Tachycardia [Unknown]
  - Thrombocytopenia [Unknown]

NARRATIVE: CASE EVENT DATE: 2015
